FAERS Safety Report 4928541-9 (Version None)
Quarter: 2006Q1

REPORT INFORMATION
  Report Type: 
  Country: None (occurrence: None)
  Receive Date: 20060223
  Receipt Date: 20060201
  Transmission Date: 20060701
  Serious: Yes (Hospitalization, Other)
  Sender: FDA-Public Use
  Company Number: US_0508120895

PATIENT
  Age: 24 Year
  Sex: Male
  Weight: 61.7 kg

DRUGS (5)
  1. ZYPREXA [Suspect]
     Indication: BIPOLAR DISORDER
     Dosage: 5 MG, EACH EVENING, UNK;  5 MG, UNK, UNK
     Dates: start: 19980428, end: 19990828
  2. ZYPREXA [Suspect]
     Indication: BIPOLAR DISORDER
     Dosage: 5 MG, EACH EVENING, UNK;  5 MG, UNK, UNK
     Dates: start: 20010621, end: 20051029
  3. HUMULIN 70/30 [Concomitant]
  4. NOVOLOG [Concomitant]
  5. FOLIC ACID (FOLIC ACID UNKNOWN MANUFACTURE) [Concomitant]

REACTIONS (8)
  - CONVULSION [None]
  - DIABETES MELLITUS [None]
  - GRAND MAL CONVULSION [None]
  - GRUNTING [None]
  - HAEMORRHAGE INTRACRANIAL [None]
  - SCREAMING [None]
  - VENOUS THROMBOSIS LIMB [None]
  - WEIGHT DECREASED [None]
